FAERS Safety Report 6508282-7 (Version None)
Quarter: 2009Q4

REPORT INFORMATION
  Report Type: 
  Country: None (occurrence: None)
  Receive Date: 20091221
  Receipt Date: 20090106
  Transmission Date: 20100525
  Serious: No
  Sender: FDA-Public Use
  Company Number: US-ASTRAZENECA-2004UW11786

PATIENT
  Age: 63 Year
  Sex: Female
  Weight: 82.1 kg

DRUGS (8)
  1. CRESTOR [Suspect]
     Indication: DIABETES MELLITUS
     Dosage: HALF OF 10 MG TABLET
     Route: 048
     Dates: start: 20040201, end: 20040315
  2. CRESTOR [Suspect]
     Route: 048
     Dates: start: 20040316, end: 20040501
  3. CRESTOR [Suspect]
     Dosage: HALF OF TABLET
     Route: 048
     Dates: start: 20040501, end: 20040501
  4. INSULIN [Concomitant]
  5. ESTRADIOL [Concomitant]
  6. PROZAC [Concomitant]
  7. TRAZODONE HCL [Concomitant]
  8. NEURONTIN [Concomitant]

REACTIONS (6)
  - AMNESIA [None]
  - APHASIA [None]
  - CONFUSIONAL STATE [None]
  - HYPOAESTHESIA [None]
  - PARAESTHESIA [None]
  - SOMNOLENCE [None]
